FAERS Safety Report 11047590 (Version 1)
Quarter: 2015Q2

REPORT INFORMATION
  Report Type: Spontaneous
  Country: IL (occurrence: IL)
  Receive Date: 20150420
  Receipt Date: 20150420
  Transmission Date: 20150821
  Serious: Yes (Other)
  Sender: FDA-Public Use
  Company Number: IL-TEVA-556285ISR

PATIENT
  Sex: Female

DRUGS (9)
  1. TAMOXIFEN 20 MG [Suspect]
     Active Substance: TAMOXIFEN
     Indication: BREAST CANCER
     Dosage: 20 MILLIGRAM DAILY;
     Dates: start: 201105, end: 201211
  2. CARDILOC [Concomitant]
     Active Substance: BISOPROLOL FUMARATE
  3. LOSARDEX [Concomitant]
  4. CADEX [Concomitant]
  5. ACETYLSALICYLIC ACID [Concomitant]
     Active Substance: ASPIRIN
  6. GLUCOMIN [Concomitant]
     Active Substance: METFORMIN HYDROCHLORIDE
  7. ROSUVASTATIN [Concomitant]
     Active Substance: ROSUVASTATIN
  8. BEZAFIBRATE 400 [Concomitant]
  9. VIEPAX [Concomitant]

REACTIONS (2)
  - Cataract [Not Recovered/Not Resolved]
  - Retinal tear [Not Recovered/Not Resolved]
